FAERS Safety Report 14976622 (Version 2)
Quarter: 2018Q2

REPORT INFORMATION
  Report Type: Report from Study
  Country: US (occurrence: US)
  Receive Date: 20180605
  Receipt Date: 20180614
  Transmission Date: 20180711
  Serious: Yes (Hospitalization)
  Sender: FDA-Public Use
  Company Number: US-ACTELION-A-NJ2018-172915

PATIENT
  Age: 57 Year
  Sex: Female

DRUGS (19)
  1. DETROL [Concomitant]
     Active Substance: TOLTERODINE TARTRATE
  2. ALBUTEROL. [Concomitant]
     Active Substance: ALBUTEROL
  3. NEBUSOL [Concomitant]
  4. COUMADIN [Concomitant]
     Active Substance: WARFARIN SODIUM
  5. TOPAMAX [Concomitant]
     Active Substance: TOPIRAMATE
  6. PREDNISONE. [Concomitant]
     Active Substance: PREDNISONE
  7. TIAZAC [Concomitant]
     Active Substance: DILTIAZEM HYDROCHLORIDE
  8. HYZAAR [Concomitant]
     Active Substance: HYDROCHLOROTHIAZIDE\LOSARTAN POTASSIUM
  9. CRESTOR [Concomitant]
     Active Substance: ROSUVASTATIN CALCIUM
  10. ZANAFLEX [Concomitant]
     Active Substance: TIZANIDINE HYDROCHLORIDE
  11. RESTORA [Concomitant]
  12. OPSUMIT [Suspect]
     Active Substance: MACITENTAN
     Indication: PULMONARY HYPERTENSION
     Dosage: 10 MG, QD
     Route: 048
     Dates: start: 20180509, end: 20180524
  13. COREG [Concomitant]
     Active Substance: CARVEDILOL
  14. NEURONTIN [Concomitant]
     Active Substance: GABAPENTIN
  15. OMEPRAZOLE. [Concomitant]
     Active Substance: OMEPRAZOLE
  16. SYNTHROID [Concomitant]
     Active Substance: LEVOTHYROXINE SODIUM
  17. ZETIA [Concomitant]
     Active Substance: EZETIMIBE
  18. REVATIO [Concomitant]
     Active Substance: SILDENAFIL CITRATE
  19. DALIRESP [Concomitant]
     Active Substance: ROFLUMILAST

REACTIONS (10)
  - Haemorrhage intracranial [Unknown]
  - Abdominal discomfort [Recovered/Resolved]
  - Generalised oedema [Unknown]
  - Haemoglobin decreased [Unknown]
  - Headache [Recovering/Resolving]
  - Hypotension [Unknown]
  - Oxygen saturation decreased [Unknown]
  - Lower respiratory tract congestion [Unknown]
  - International normalised ratio increased [Unknown]
  - Fluid retention [Unknown]

NARRATIVE: CASE EVENT DATE: 20180509
